FAERS Safety Report 6501027-6 (Version None)
Quarter: 2009Q4

REPORT INFORMATION
  Report Type: 
  Country: None (occurrence: None)
  Receive Date: 20091216
  Receipt Date: 20090610
  Transmission Date: 20100525
  Serious: No
  Sender: FDA-Public Use
  Company Number: A0788498A

PATIENT
  Age: 65 Year
  Sex: Female

DRUGS (2)
  1. NICOTINE POLACRILEX [Suspect]
     Indication: SMOKING CESSATION THERAPY
     Dates: start: 20090423
  2. NICODERM CQ [Suspect]
     Indication: SMOKING CESSATION THERAPY

REACTIONS (9)
  - APPETITE DISORDER [None]
  - DIARRHOEA [None]
  - DIZZINESS [None]
  - DRUG ADMINISTRATION ERROR [None]
  - HYPERSENSITIVITY [None]
  - ILL-DEFINED DISORDER [None]
  - NICOTINE DEPENDENCE [None]
  - SOMNOLENCE [None]
  - WEIGHT DECREASED [None]
